FAERS Safety Report 15844620 (Version 1)
Quarter: 2019Q1

REPORT INFORMATION
  Report Type: Spontaneous
  Country: JP (occurrence: JP)
  Receive Date: 20190118
  Receipt Date: 20190118
  Transmission Date: 20190417
  Serious: Yes (Other)
  Sender: FDA-Public Use
  Company Number: JP-ALLERGAN-1902358US

PATIENT
  Age: 13 Year
  Sex: Male

DRUGS (4)
  1. MESALAZINE UNK [Suspect]
     Active Substance: MESALAMINE
     Dosage: 75 MG/KG/DAY
     Route: 048
  2. INFLIXIMAB [Concomitant]
     Active Substance: INFLIXIMAB
     Indication: COLITIS ULCERATIVE
     Dosage: 5 MG/DOSE
  3. PREDNISOLONE. [Concomitant]
     Active Substance: PREDNISOLONE
     Indication: COLITIS ULCERATIVE
     Dosage: 1 MG/KG/DAY
  4. MESALAZINE UNK [Suspect]
     Active Substance: MESALAMINE
     Indication: COLITIS ULCERATIVE
     Dosage: 100 MG/KG/DAY
     Route: 048

REACTIONS (2)
  - Treatment failure [Unknown]
  - Acute focal bacterial nephritis [Recovered/Resolved]
